FAERS Safety Report 25801655 (Version 1)
Quarter: 2025Q3

REPORT INFORMATION
  Report Type: Report from Study
  Country: US (occurrence: US)
  Receive Date: 20250915
  Receipt Date: 20250915
  Transmission Date: 20251021
  Serious: No
  Sender: SUNOVION
  Company Number: US-SUMITOMO PHARMA SWITZERLAND GMBH-2025SPA011050

PATIENT
  Age: 83 Year
  Sex: Male

DRUGS (7)
  1. ORGOVYX [Suspect]
     Active Substance: RELUGOLIX
     Indication: Prostate cancer
     Route: 048
  2. ALLOPURINOL [Concomitant]
     Active Substance: ALLOPURINOL
  3. Caltrate 600+d3 plus minerals [Concomitant]
  4. FLUOCINONIDE [Concomitant]
     Active Substance: FLUOCINONIDE
  5. KETOCONAZOLE [Concomitant]
     Active Substance: KETOCONAZOLE
  6. PRAVASTATIN SODIUM [Concomitant]
     Active Substance: PRAVASTATIN SODIUM
  7. VALSARTAN [Concomitant]
     Active Substance: VALSARTAN

REACTIONS (2)
  - Hot flush [Unknown]
  - Incorrect dose administered [Recovered/Resolved]
